FAERS Safety Report 4383704-9 (Version None)
Quarter: 2004Q2

REPORT INFORMATION
  Report Type: 
  Country: None (occurrence: None)
  Receive Date: 20040618
  Receipt Date: 20040604
  Transmission Date: 20050107
  Serious: Yes (Other)
  Sender: FDA-Public Use
  Company Number: HQWYE293907JUN04

PATIENT
  Sex: Female
  Weight: 65.83 kg

DRUGS (6)
  1. PREMARIN [Suspect]
     Indication: HOT FLUSH
     Dosage: SEE IMAGE
     Route: 048
     Dates: start: 19931201, end: 20031201
  2. PREMARIN [Suspect]
     Indication: HOT FLUSH
     Dosage: SEE IMAGE
     Route: 048
     Dates: start: 20031201
  3. ACETAMINOPHEN [Suspect]
     Dosage: ORAL
     Route: 048
  4. BENADRYL [Suspect]
     Dosage: 3 CAPSULES ONE TIME, ORAL
     Route: 048
  5. ANTITUSSIVE (ANTITUSSIVE,) [Suspect]
     Dosage: ORAL
     Route: 048
  6. PROVERA [Concomitant]

REACTIONS (3)
  - HYPERSENSITIVITY [None]
  - LOSS OF CONSCIOUSNESS [None]
  - STRESS SYMPTOMS [None]
